FAERS Safety Report 25279314 (Version 1)
Quarter: 2025Q2

REPORT INFORMATION
  Report Type: Spontaneous
  Country: US (occurrence: US)
  Receive Date: 20250507
  Receipt Date: 20250507
  Transmission Date: 20250716
  Serious: Yes (Other)
  Sender: AMGEN
  Company Number: US-AMGEN-USASP2025085595

PATIENT
  Age: 48 Year
  Sex: Male

DRUGS (2)
  1. KRYSTEXXA [Suspect]
     Active Substance: PEGLOTICASE
     Indication: Gouty tophus
     Dosage: 8 MILLIGRAM, Q2WK
     Route: 040
     Dates: start: 202502
  2. KRYSTEXXA [Suspect]
     Active Substance: PEGLOTICASE
     Dosage: 8 MILLIGRAM, Q2WK (FOURTH INFUSION)
     Route: 040
     Dates: start: 2025, end: 2025

REACTIONS (1)
  - Anaphylactic reaction [Recovered/Resolved]

NARRATIVE: CASE EVENT DATE: 20250101
